FAERS Safety Report 6565257-X (Version None)
Quarter: 2010Q1

REPORT INFORMATION
  Report Type: 
  Country: None (occurrence: None)
  Receive Date: 20100201
  Receipt Date: 20100119
  Transmission Date: 20100710
  Serious: Yes (Hospitalization, Other)
  Sender: FDA-Public Use
  Company Number: FR-ELI_LILLY_AND_COMPANY-FR201001003583

PATIENT
  Sex: Male

DRUGS (4)
  1. GEMZAR [Suspect]
     Indication: LUNG CANCER METASTATIC
     Dosage: 1800 MG, UNK
     Route: 042
     Dates: start: 20090519, end: 20091116
  2. SOLU-PRED [Concomitant]
     Dosage: 40 MG, DAILY (1/D)
     Route: 048
  3. ACTISKENAN [Concomitant]
     Dosage: 5 MG, DAILY (1/D)
  4. DURAGESIC-100 [Concomitant]
     Dosage: 12 UG, UNK
     Route: 062

REACTIONS (4)
  - DEEP VEIN THROMBOSIS [None]
  - EPILEPSY [None]
  - HAEMOLYTIC URAEMIC SYNDROME [None]
  - SEPSIS [None]
